FAERS Safety Report 5719995-9 (Version None)
Quarter: 2008Q2

REPORT INFORMATION
  Report Type: 
  Country: None (occurrence: None)
  Receive Date: 20080424
  Receipt Date: 20080415
  Transmission Date: 20081010
  Serious: Yes (Death, Other)
  Sender: FDA-Public Use
  Company Number: 163-21880-08030541

PATIENT
  Age: 84 Year
  Sex: Male

DRUGS (3)
  1. REVLIMID [Suspect]
     Indication: MULTIPLE MYELOMA
     Dosage: 3 TIMES WEEKLY FOR 3 WEEKS, ORAL; 7.5 MG, 1 IN 2 D, ORAL;  3 TIMES WEEKLY FOR 3 WEEKS, ORAL
     Route: 048
     Dates: start: 20070511, end: 20070601
  2. REVLIMID [Suspect]
     Indication: MULTIPLE MYELOMA
     Dosage: 3 TIMES WEEKLY FOR 3 WEEKS, ORAL; 7.5 MG, 1 IN 2 D, ORAL;  3 TIMES WEEKLY FOR 3 WEEKS, ORAL
     Route: 048
     Dates: start: 20070611, end: 20070701
  3. REVLIMID [Suspect]
     Indication: MULTIPLE MYELOMA
     Dosage: 3 TIMES WEEKLY FOR 3 WEEKS, ORAL; 7.5 MG, 1 IN 2 D, ORAL;  3 TIMES WEEKLY FOR 3 WEEKS, ORAL
     Route: 048
     Dates: start: 20070927, end: 20071201

REACTIONS (3)
  - FALL [None]
  - PROCEDURAL COMPLICATION [None]
  - SUBDURAL HAEMATOMA [None]
